FAERS Safety Report 19923264 (Version 1)
Quarter: 2021Q4

REPORT INFORMATION
  Report Type: Spontaneous
  Country: US (occurrence: US)
  Receive Date: 20211005
  Receipt Date: 20211005
  Transmission Date: 20220303
  Serious: No
  Sender: FDA-Public Use
  Company Number: US-PERRIGO-21US010997

PATIENT
  Age: 2 Year
  Sex: Female
  Weight: 15.87 kg

DRUGS (2)
  1. CHILDRENS CETIRIZINE HYDROCHLORIDE ALLERGY [Suspect]
     Active Substance: CETIRIZINE HYDROCHLORIDE
     Indication: Seasonal allergy
     Dosage: 5 MG, PRN
     Route: 048
     Dates: start: 2020
  2. CHILDRENS CETIRIZINE HYDROCHLORIDE ALLERGY [Suspect]
     Active Substance: CETIRIZINE HYDROCHLORIDE
     Dosage: 10 MG, SINGLE
     Route: 048
     Dates: start: 20210806, end: 20210806

REACTIONS (3)
  - Product administered to patient of inappropriate age [Recovered/Resolved]
  - Incorrect dose administered [Recovered/Resolved]
  - Drug administered in wrong device [Recovered/Resolved]

NARRATIVE: CASE EVENT DATE: 20200101
